FAERS Safety Report 9050489 (Version 3)
Quarter: 2014Q1

REPORT INFORMATION
  Report Type: Spontaneous
  Country: US (occurrence: US)
  Receive Date: 20130205
  Receipt Date: 20140331
  Transmission Date: 20141002
  Serious: Yes (Hospitalization, Other)
  Sender: FDA-Public Use
  Company Number: US-TEVA-384387USA

PATIENT
  Age: 57 Year
  Sex: Male
  Weight: 50.39 kg

DRUGS (8)
  1. ACTIQ [Suspect]
     Indication: CANCER PAIN
     Route: 048
     Dates: start: 1992, end: 201312
  2. ACTIQ [Suspect]
     Indication: MALIGNANT MELANOMA
  3. PERCOCET [Concomitant]
     Indication: BACK DISORDER
     Dosage: 80  DAILY;
  4. METHADONE [Concomitant]
     Indication: BACK DISORDER
  5. MUSCLE RELAXER [Concomitant]
     Indication: BACK DISORDER
  6. DIAZEPAM [Concomitant]
     Indication: BACK DISORDER
  7. BLOOD PRESSURE MEDICATION [Concomitant]
     Indication: BLOOD PRESSURE ABNORMAL
  8. APPETITE STIMULANT MEDICATION [Concomitant]
     Indication: DECREASED APPETITE

REACTIONS (23)
  - Loss of consciousness [Recovered/Resolved]
  - Femur fracture [Recovered/Resolved]
  - Pneumonia [Recovered/Resolved]
  - Mobility decreased [Recovered/Resolved]
  - Fatigue [Recovered/Resolved]
  - Dyspnoea [Recovered/Resolved]
  - Weight decreased [Not Recovered/Not Resolved]
  - Tooth disorder [Recovered/Resolved]
  - Tooth extraction [Recovered/Resolved]
  - Tooth disorder [Recovered/Resolved]
  - Pain [Unknown]
  - Salivary gland disorder [Recovered/Resolved]
  - Bone loss [Not Recovered/Not Resolved]
  - Body height decreased [Not Recovered/Not Resolved]
  - Eating disorder [Not Recovered/Not Resolved]
  - Nerve injury [Unknown]
  - Malnutrition [Unknown]
  - Feeling abnormal [Recovered/Resolved]
  - Feeling abnormal [Recovered/Resolved]
  - Anaemia [Not Recovered/Not Resolved]
  - Visual impairment [Recovered/Resolved]
  - Lip haemorrhage [Recovered/Resolved]
  - Malnutrition [Not Recovered/Not Resolved]
